FAERS Safety Report 22540868 (Version 2)
Quarter: 2023Q2

REPORT INFORMATION
  Report Type: Report from Study
  Country: FR (occurrence: FR)
  Receive Date: 20230609
  Receipt Date: 20230623
  Transmission Date: 20230722
  Serious: Yes (Hospitalization)
  Sender: FDA-Public Use
  Company Number: FR-PFIZER INC-PV202300098643

PATIENT
  Age: 75 Year
  Sex: Male

DRUGS (23)
  1. AVELUMAB [Suspect]
     Active Substance: AVELUMAB
     Indication: Transitional cell carcinoma
     Dosage: EVERY 0.5 CYCLE (D1 AND D15 OF CYCLES OF 28 DAYS)
     Route: 042
     Dates: start: 20230224, end: 20230504
  2. TALAZOPARIB [Suspect]
     Active Substance: TALAZOPARIB
     Indication: Transitional cell carcinoma
     Dosage: 1 MG, 28 DAYS CYCLE EXCEPT FOR PATIENTS WITH MILD RENAL IMPAIRMENT WHO WILL RECEIVE 0.75 MG PER DAY.
     Route: 048
     Dates: start: 20230224, end: 20230324
  3. TALAZOPARIB [Suspect]
     Active Substance: TALAZOPARIB
     Dosage: 1 MG, 28 DAYS CYCLE EXCEPT FOR PATIENTS WITH MILD RENAL IMPAIRMENT WHO WILL RECEIVE 0.75 MG PER DAY.
     Route: 048
     Dates: start: 20230407, end: 20230504
  4. LEVOTHYROXINE [Concomitant]
     Active Substance: LEVOTHYROXINE
     Indication: Hypothyroidism
     Dosage: 75 UG, DAILY
     Route: 048
  5. PRAVASTATIN [Concomitant]
     Active Substance: PRAVASTATIN
  6. METFORMIN HYDROCHLORIDE\SAXAGLIPTIN [Concomitant]
     Active Substance: METFORMIN HYDROCHLORIDE\SAXAGLIPTIN
     Indication: Diabetes mellitus
     Dosage: 2,5 / 100 MG DAILY
     Route: 048
  7. GLICLAZIDE [Concomitant]
     Active Substance: GLICLAZIDE
  8. FELODIPINE [Concomitant]
     Active Substance: FELODIPINE
  9. IRBESARTAN [Concomitant]
     Active Substance: IRBESARTAN
  10. INNOHEP [Concomitant]
     Active Substance: TINZAPARIN SODIUM
  11. LYRICA [Concomitant]
     Active Substance: PREGABALIN
     Dosage: EVERY 12 HOURS
  12. FOLIC ACID [Concomitant]
     Active Substance: FOLIC ACID
  13. KARDEGIC [Concomitant]
     Active Substance: ASPIRIN DL-LYSINE
  14. ESOMEPRAZOLE [Concomitant]
     Active Substance: ESOMEPRAZOLE
  15. ATENOLOL [Concomitant]
     Active Substance: ATENOLOL
  16. TOUJEO [Concomitant]
     Active Substance: INSULIN GLARGINE
  17. ZOPICLONE [Concomitant]
     Active Substance: ZOPICLONE
  18. ERYTHROPOIETIN [Concomitant]
     Active Substance: ERYTHROPOIETIN
     Dosage: 3000 IU, WEEKLY
  19. SKENAN [Concomitant]
     Active Substance: MORPHINE SULFATE
     Dosage: 20 MG, EVERY 12 HOURS
  20. MORPHINE SULFATE [Concomitant]
     Active Substance: MORPHINE SULFATE
     Dosage: 10 MG, AS NEEDED
  21. BICALAN [BICALUTAMIDE] [Concomitant]
  22. ACETAMINOPHEN [Concomitant]
     Active Substance: ACETAMINOPHEN
  23. VOGALENE [Concomitant]
     Active Substance: METOPIMAZINE

REACTIONS (1)
  - Addison^s disease [Recovered/Resolved]

NARRATIVE: CASE EVENT DATE: 20230522
